FAERS Safety Report 15138178 (Version 1)
Quarter: 2018Q3

REPORT INFORMATION
  Report Type: Spontaneous
  Country: FR (occurrence: FR)
  Receive Date: 20180713
  Receipt Date: 20180713
  Transmission Date: 20181010
  Serious: Yes (Other)
  Sender: FDA-Public Use
  Company Number: FR-ABBVIE-18K-056-2400693-00

PATIENT
  Age: 36 Year
  Sex: Female
  Weight: 64 kg

DRUGS (1)
  1. HUMIRA [Suspect]
     Active Substance: ADALIMUMAB
     Indication: COLITIS ULCERATIVE
     Route: 058
     Dates: start: 20161130

REACTIONS (8)
  - Abdominal pain [Recovered/Resolved]
  - Infection [Unknown]
  - Abnormal faeces [Recovering/Resolving]
  - Intentional product misuse [Unknown]
  - Drug ineffective [Unknown]
  - Haematochezia [Recovering/Resolving]
  - Abdominal pain [Recovering/Resolving]
  - Mucous stools [Unknown]

NARRATIVE: CASE EVENT DATE: 201806
